FAERS Safety Report 8965834 (Version 1)
Quarter: 2012Q4

REPORT INFORMATION
  Report Type: 
  Country: GB (occurrence: GB)
  Receive Date: 20121217
  Receipt Date: 20121217
  Transmission Date: 20130627
  Serious: Yes (Other)
  Sender: FDA-Public Use
  Company Number: GB-PFIZER INC-2012314618

PATIENT
  Age: 43 Year
  Sex: Female
  Weight: 56 kg

DRUGS (3)
  1. PREGABALIN [Suspect]
     Indication: ANXIETY DEPRESSION
     Dosage: 150 mg, UNK
     Route: 048
     Dates: start: 20120907, end: 20120921
  2. PROZAC [Concomitant]
  3. EVENING PRIMROSE OIL [Concomitant]
     Route: 048

REACTIONS (4)
  - Breast enlargement [Not Recovered/Not Resolved]
  - Hypoaesthesia [Not Recovered/Not Resolved]
  - Local swelling [Recovering/Resolving]
  - Breast pain [Not Recovered/Not Resolved]
